FAERS Safety Report 4390036-1 (Version None)
Quarter: 2004Q2

REPORT INFORMATION
  Report Type: 
  Country: None (occurrence: None)
  Receive Date: 20040630
  Receipt Date: 20040616
  Transmission Date: 20050107
  Serious: Yes (Death, Hospitalization, Other)
  Sender: FDA-Public Use
  Company Number: JP-JNJFOC-20040402644

PATIENT
  Age: 62 Year
  Sex: Female
  Weight: 38 kg

DRUGS (12)
  1. REMICADE [Suspect]
     Indication: RHEUMATOID ARTHRITIS
     Dosage: 3 MG/KG, 1 IN 1 AS NECESSARY, INTRAVENOUS DRIP
     Route: 041
     Dates: start: 20040315, end: 20040315
  2. REMICADE [Suspect]
     Indication: RHEUMATOID ARTHRITIS
     Dosage: 3 MG/KG, 1 IN 1 AS NECESSARY, INTRAVENOUS DRIP
     Route: 041
     Dates: start: 20040329, end: 20040329
  3. PREDNISOLONE [Concomitant]
  4. METHOTREXATE (UNSPECIFIED) METHOTREXATE [Concomitant]
  5. RHEUMATREX [Concomitant]
  6. LORCAM (ALL OTHER THERAPEUTIC PRODUCTS) TABLETS [Concomitant]
  7. FOLIAMIN (FOLIC ACID) TABLETS [Concomitant]
  8. PLATIVIT (ALL OTHER THERAPEUTIC PRODUCTS) TABLETS [Concomitant]
  9. SELBEX (TEPRENONE) CAPSULES [Concomitant]
  10. FERROMIA (FERROUS CITRATE) TABLETS [Concomitant]
  11. PRONON (PROPAFENONE HYDROCHLORIDE) TABLETS [Concomitant]
  12. LASIX [Concomitant]

REACTIONS (21)
  - C-REACTIVE PROTEIN INCREASED [None]
  - CELLULITIS [None]
  - CONDITION AGGRAVATED [None]
  - COUGH [None]
  - DEAFNESS NEUROSENSORY [None]
  - DECREASED APPETITE [None]
  - DRUG INTERACTION [None]
  - DYSPHAGIA [None]
  - GRANULOCYTE COUNT DECREASED [None]
  - INCREASED UPPER AIRWAY SECRETION [None]
  - OEDEMA PERIPHERAL [None]
  - PAIN [None]
  - PERIANAL ERYTHEMA [None]
  - PLATELET COUNT DECREASED [None]
  - PYREXIA [None]
  - RED BLOOD CELL COUNT DECREASED [None]
  - SPEECH DISORDER [None]
  - STAPHYLOCOCCAL INFECTION [None]
  - SWELLING [None]
  - VOMITING [None]
  - WHITE BLOOD CELL COUNT DECREASED [None]
